FAERS Safety Report 8115046-X (Version None)
Quarter: 2012Q1

REPORT INFORMATION
  Report Type: 
  Country: None (occurrence: None)
  Receive Date: 20120206
  Receipt Date: 20120130
  Transmission Date: 20120608
  Serious: Yes (Death)
  Sender: FDA-Public Use
  Company Number: US-CUBIST-2012S1000096

PATIENT
  Age: 61 Year
  Sex: Female

DRUGS (6)
  1. CEFEPIME [Concomitant]
     Indication: PRODUCT USED FOR UNKNOWN INDICATION
     Dosage: DOSE UNIT:U UNKNOWN
     Route: 065
  2. CLINDAMYCIN [Concomitant]
     Indication: PRODUCT USED FOR UNKNOWN INDICATION
     Dosage: DOSE UNIT:U UNKNOWN
     Route: 065
  3. CUBICIN [Suspect]
     Indication: STAPHYLOCOCCAL INFECTION
     Dosage: DOSE UNIT:U UNKNOWN
     Route: 065
  4. VANCOMYCIN [Concomitant]
     Indication: STAPHYLOCOCCAL BACTERAEMIA
     Dosage: DOSE UNIT:U UNKNOWN
     Route: 065
     Dates: start: 20060901
  5. VANCOMYCIN [Concomitant]
     Dosage: DOSE UNIT:U UNKNOWN
     Route: 065
     Dates: start: 20071201
  6. CIPROFLOXACIN [Concomitant]
     Indication: PRODUCT USED FOR UNKNOWN INDICATION
     Dosage: DOSE UNIT:U UNKNOWN
     Route: 065

REACTIONS (2)
  - CARDIAC ARREST [None]
  - ESCHERICHIA BACTERAEMIA [None]
